FAERS Safety Report 5820189-7 (Version None)
Quarter: 2008Q3

REPORT INFORMATION
  Report Type: 
  Country: None (occurrence: None)
  Receive Date: 20080724
  Receipt Date: 20080717
  Transmission Date: 20090109
  Serious: Yes (Death, Other)
  Sender: FDA-Public Use
  Company Number: PHHY2008NZ03176

PATIENT
  Sex: Female
  Weight: 93 kg

DRUGS (5)
  1. CLOZARIL [Suspect]
     Indication: SCHIZOPHRENIA
     Dosage: 600 MG/DAY
     Route: 048
     Dates: start: 20041221
  2. CLOZARIL [Suspect]
     Dosage: 200 MG/DAY
     Dates: start: 20080305, end: 20080305
  3. CLOZARIL [Suspect]
     Dosage: 400 MG/DAY
     Route: 048
     Dates: start: 20080306
  4. RISPERIDONE [Concomitant]
     Dosage: 2.0 MG/DAY
  5. PAROXETINE HCL [Concomitant]
     Dosage: 20 MG/DAY

REACTIONS (9)
  - ANOREXIA [None]
  - ANTIPSYCHOTIC DRUG LEVEL ABOVE THERAPEUTIC [None]
  - DEATH [None]
  - MALAISE [None]
  - MALIGNANT MELANOMA [None]
  - ORTHOSTATIC HYPOTENSION [None]
  - SURGERY [None]
  - TACHYCARDIA [None]
  - VOMITING [None]
